FAERS Safety Report 16255501 (Version 2)
Quarter: 2019Q3

REPORT INFORMATION
  Report Type: Report from Study
  Country: US (occurrence: US)
  Receive Date: 20190430
  Receipt Date: 20190715
  Transmission Date: 20191004
  Serious: Yes (Hospitalization, Other)
  Sender: FDA-Public Use
  Company Number: US-BAYER-2019-081630

PATIENT
  Age: 70 Year
  Sex: Female

DRUGS (2)
  1. ADEMPAS [Suspect]
     Active Substance: RIOCIGUAT
     Indication: PULMONARY HYPERTENSION
     Dosage: 2.0 MG TABLETS THREE TIMES DAILY
     Route: 048
  2. ADEMPAS [Suspect]
     Active Substance: RIOCIGUAT
     Indication: PULMONARY HYPERTENSION
     Dosage: UNK
     Dates: start: 201701, end: 201701

REACTIONS (7)
  - Syncope [Unknown]
  - Mental impairment [Unknown]
  - Abdominal discomfort [None]
  - Tremor [Recovered/Resolved]
  - Vision blurred [Unknown]
  - Tremor [Recovered/Resolved]
  - Confusional state [None]

NARRATIVE: CASE EVENT DATE: 201701
